FAERS Safety Report 24210638 (Version 1)
Quarter: 2024Q3

REPORT INFORMATION
  Report Type: Spontaneous
  Country: FR (occurrence: FR)
  Receive Date: 20240814
  Receipt Date: 20240814
  Transmission Date: 20241016
  Serious: Yes (Hospitalization, Other)
  Sender: GLAXOSMITHKLINE
  Company Number: None

PATIENT

DRUGS (3)
  1. LAMOTRIGINE [Suspect]
     Active Substance: LAMOTRIGINE
     Indication: Intentional overdose
     Dosage: UNK (NP)
     Route: 048
     Dates: start: 20240718, end: 20240718
  2. VALIUM [Suspect]
     Active Substance: DIAZEPAM
     Indication: Intentional overdose
     Dosage: 50 MG (SINGLE)
     Route: 048
     Dates: start: 20240718, end: 20240718
  3. FLUOXETINE [Suspect]
     Active Substance: FLUOXETINE HYDROCHLORIDE
     Indication: Intentional overdose
     Dosage: 280 MG (SINGLE)
     Route: 048
     Dates: start: 20240718, end: 20240718

REACTIONS (3)
  - Coma [Recovered/Resolved]
  - Poisoning deliberate [Recovered/Resolved]
  - Hypotension [Recovered/Resolved]

NARRATIVE: CASE EVENT DATE: 20240718
